FAERS Safety Report 5894324-9 (Version None)
Quarter: 2008Q3

REPORT INFORMATION
  Report Type: 
  Country: None (occurrence: None)
  Receive Date: 20080923
  Receipt Date: 20080916
  Transmission Date: 20090109
  Serious: Yes (Other)
  Sender: FDA-Public Use
  Company Number: US-ALLERGAN-0808639US

PATIENT
  Sex: Female

DRUGS (3)
  1. RESTASIS [Suspect]
     Indication: DRY EYE
     Dosage: 1 GTT, Q12H
     Route: 047
     Dates: start: 20080301, end: 20080623
  2. RESTASIS [Suspect]
     Indication: BLEPHARITIS
  3. CLINDAMYCIN HCL [Concomitant]
     Indication: ACNE
     Route: 061

REACTIONS (1)
  - OPTIC NEURITIS [None]
